FAERS Safety Report 11759481 (Version 2)
Quarter: 2015Q4

REPORT INFORMATION
  Report Type: Report from Study
  Country: US (occurrence: US)
  Receive Date: 20151120
  Receipt Date: 20151203
  Transmission Date: 20160304
  Serious: Yes (Other)
  Sender: FDA-Public Use
  Company Number: US-ACTELION-A-US2015-127435

PATIENT
  Age: 43 Year
  Sex: Female

DRUGS (1)
  1. MACITENTAN [Suspect]
     Active Substance: MACITENTAN
     Indication: PULMONARY ARTERIAL HYPERTENSION
     Dosage: 10 MG, QD
     Route: 048
     Dates: start: 201508

REACTIONS (4)
  - Menorrhagia [Recovering/Resolving]
  - Activities of daily living impaired [Recovering/Resolving]
  - Anaemia [Recovering/Resolving]
  - Transfusion [Recovering/Resolving]
